FAERS Safety Report 23916774 (Version 3)
Quarter: 2024Q4

REPORT INFORMATION
  Report Type: Spontaneous
  Country: US (occurrence: US)
  Receive Date: 20240529
  Receipt Date: 20241111
  Transmission Date: 20250114
  Serious: No
  Sender: SANOFI AVENTIS
  Company Number: US-SA-SAC20240527000195

PATIENT
  Age: 6 Year
  Sex: Male

DRUGS (1)
  1. DUPIXENT [Suspect]
     Active Substance: DUPILUMAB
     Indication: Asthma
     Dosage: 200MG,QOW
     Route: 058
     Dates: start: 20240406

REACTIONS (17)
  - Rash erythematous [Unknown]
  - Eye discharge [Recovering/Resolving]
  - Headache [Recovering/Resolving]
  - Decreased appetite [Recovering/Resolving]
  - Electric shock sensation [Recovering/Resolving]
  - Dizziness [Recovering/Resolving]
  - Urticaria [Unknown]
  - Skin exfoliation [Unknown]
  - Eye swelling [Recovering/Resolving]
  - Eye irritation [Recovering/Resolving]
  - Acne [Recovering/Resolving]
  - Dry skin [Recovering/Resolving]
  - Hypoglycaemia [Recovering/Resolving]
  - Eating disorder [Recovering/Resolving]
  - Dermatitis allergic [Recovering/Resolving]
  - Asthma [Recovering/Resolving]
  - Respiratory tract congestion [Recovering/Resolving]

NARRATIVE: CASE EVENT DATE: 20240101
